FAERS Safety Report 6678230-8 (Version None)
Quarter: 2010Q2

REPORT INFORMATION
  Report Type: 
  Country: None (occurrence: None)
  Receive Date: 20100408
  Receipt Date: 20100408
  Transmission Date: 20101027
  Serious: No
  Sender: FDA-Public Use
  Company Number: None

PATIENT
  Sex: Male

DRUGS (1)
  1. ZOLPIDEM [Suspect]
     Indication: INSOMNIA
     Dosage: 30 1 AT BEDTIME PO (DURATION: LESS THAN ONE MONTH)
     Route: 048
     Dates: start: 20100310, end: 20100407

REACTIONS (2)
  - DRUG INEFFECTIVE [None]
  - FEELING DRUNK [None]
